FAERS Safety Report 7587715-1 (Version None)
Quarter: 2011Q3

REPORT INFORMATION
  Report Type: 
  Country: None (occurrence: None)
  Receive Date: 20110704
  Receipt Date: 20110621
  Transmission Date: 20111222
  Serious: Yes (Hospitalization, Other)
  Sender: FDA-Public Use
  Company Number: US-ELI_LILLY_AND_COMPANY-US201106008057

PATIENT
  Sex: Female

DRUGS (1)
  1. FORTEO [Suspect]
     Indication: OSTEOPOROSIS
     Dosage: 20 UG, QD
     Route: 065
     Dates: start: 20110201, end: 20110422

REACTIONS (4)
  - BLOOD COUNT ABNORMAL [None]
  - CERVICAL VERTEBRAL FRACTURE [None]
  - MALAISE [None]
  - MENTAL IMPAIRMENT [None]
